FAERS Safety Report 14978108 (Version 1)
Quarter: 2018Q2

REPORT INFORMATION
  Report Type: Spontaneous
  Country: TW (occurrence: TW)
  Receive Date: 20180606
  Receipt Date: 20180606
  Transmission Date: 20180711
  Serious: Yes (Other)
  Sender: FDA-Public Use
  Company Number: TW-REGENERON PHARMACEUTICALS, INC.-2018-25288

PATIENT

DRUGS (2)
  1. EYLEA [Suspect]
     Active Substance: AFLIBERCEPT
     Dosage: DOSE AND FREQUENCY NOT REPORTED.
     Dates: start: 20180522
  2. EYLEA [Suspect]
     Active Substance: AFLIBERCEPT
     Indication: NEOVASCULAR AGE-RELATED MACULAR DEGENERATION
     Dosage: DOSE AND FREQUENCY NOT REPORTED. PATIENT RECEIVED 5 INJECTIONS.
     Dates: start: 2016

REACTIONS (2)
  - Injection site discomfort [Unknown]
  - Macular oedema [Unknown]
